FAERS Safety Report 5753544-4 (Version None)
Quarter: 2008Q2

REPORT INFORMATION
  Report Type: 
  Country: None (occurrence: None)
  Receive Date: 20080530
  Receipt Date: 20080528
  Transmission Date: 20081010
  Serious: Yes (Other)
  Sender: FDA-Public Use
  Company Number: SE-RB-001607-08

PATIENT
  Age: 40 Year
  Sex: Male

DRUGS (1)
  1. SUBOXONE [Suspect]
     Indication: DRUG ABUSE
     Dosage: 16-24MG DAILY FOR OPIATE ABUSE.
     Route: 060

REACTIONS (4)
  - FLUID RETENTION [None]
  - SWELLING [None]
  - THROMBOSIS [None]
  - WEIGHT INCREASED [None]
